FAERS Safety Report 8734234 (Version 3)
Quarter: 2013Q4

REPORT INFORMATION
  Report Type: Spontaneous
  Country: TR (occurrence: TR)
  Receive Date: 20120821
  Receipt Date: 20131018
  Transmission Date: 20140711
  Serious: Yes (Death, Hospitalization)
  Sender: FDA-Public Use
  Company Number: TR-ALEXION PHARMACEUTICALS INC.-A201201509

PATIENT
  Age: 9 Year
  Sex: Male

DRUGS (2)
  1. SOLIRIS 300MG [Suspect]
     Indication: HAEMOLYTIC URAEMIC SYNDROME
     Dosage: 600 MG, Q2W
     Route: 042
     Dates: start: 20120215, end: 20121002
  2. SOLIRIS 300MG [Suspect]
     Indication: OFF LABEL USE

REACTIONS (4)
  - Cardiomyopathy [Fatal]
  - Cardiac failure [Fatal]
  - Acute pulmonary oedema [Unknown]
  - Off label use [Unknown]
